FAERS Safety Report 5667338-1 (Version None)
Quarter: 2008Q1

REPORT INFORMATION
  Report Type: 
  Country: None (occurrence: None)
  Receive Date: 20080315
  Receipt Date: 20080121
  Transmission Date: 20080703
  Serious: No
  Sender: FDA-Public Use
  Company Number: US-ABBOTT-08P-163-0434193-00

PATIENT
  Sex: Female
  Weight: 86.26 kg

DRUGS (3)
  1. HUMIRA [Suspect]
     Indication: ANKYLOSING SPONDYLITIS
     Route: 058
     Dates: start: 20071001
  2. METHOTREXATE [Concomitant]
     Indication: ANKYLOSING SPONDYLITIS
  3. BENICAR HCT [Concomitant]
     Indication: HYPERTENSION
     Route: 048

REACTIONS (3)
  - COUGH [None]
  - PHARYNGOLARYNGEAL PAIN [None]
  - SINUS CONGESTION [None]
